FAERS Safety Report 9239509 (Version 1)
Quarter: 2013Q2

REPORT INFORMATION
  Report Type: Report from Study
  Country: US (occurrence: US)
  Receive Date: 20130418
  Receipt Date: 20130418
  Transmission Date: 20140414
  Serious: Yes (Hospitalization)
  Sender: FDA-Public Use
  Company Number: US-US-EMD SERONO, INC.-7205127

PATIENT
  Sex: Male
  Weight: 13 kg

DRUGS (1)
  1. SAIZEN [(SOMATROPIN (RDNA ORIGIN) FOR INJECTION)] [Suspect]
     Indication: GROWTH HORMONE DEFICIENCY
     Dates: start: 20120908

REACTIONS (5)
  - Sleep study abnormal [Unknown]
  - Staphylococcal infection [Unknown]
  - Clostridium difficile infection [Unknown]
  - Dyspnoea [Not Recovered/Not Resolved]
  - Muscular weakness [Unknown]
